FAERS Safety Report 9222107 (Version 1)
Quarter: 2013Q2

REPORT INFORMATION
  Report Type: Spontaneous
  Country: US (occurrence: None)
  Receive Date: 20130408
  Receipt Date: 20130408
  Transmission Date: 20140414
  Serious: Yes (Hospitalization, Other)
  Sender: FDA-Public Use
  Company Number: 07-AUR-00089

PATIENT
  Age: 61 Year
  Sex: Female

DRUGS (9)
  1. METFORMIN (METFORMIN) [Suspect]
     Indication: TYPE 2 DIABETES MELLITUS
  2. ADVIL (IBUPROFEN) [Suspect]
     Indication: PRODUCT USED FOR UNKNOWN INDICATION
     Route: 048
  3. LISINOPRIL [Suspect]
     Indication: MYOCARDIAL INFARCTION
     Route: 048
  4. ASPIRIN (ACETYLSALICYLIC ACID) [Concomitant]
  5. ATENOLOL (ATENOLOL) [Concomitant]
  6. CLOPIDOGREL (CLOPIDOGREL) [Concomitant]
  7. NITRATE (SILVER NITRATE) [Concomitant]
  8. NATEGLINIDE (NATEGLINIDE) [Concomitant]
  9. AMLODIPINE (AMLODIPINE) [Concomitant]

REACTIONS (5)
  - Pancreatitis acute [None]
  - Lactic acidosis [None]
  - Blood creatinine increased [None]
  - Vomiting [None]
  - Haemodialysis [None]
